FAERS Safety Report 8912707 (Version 3)
Quarter: 2013Q4

REPORT INFORMATION
  Report Type: Spontaneous
  Country: US (occurrence: US)
  Receive Date: 20121116
  Receipt Date: 20131115
  Transmission Date: 20140711
  Serious: Yes (Hospitalization, Other)
  Sender: FDA-Public Use
  Company Number: US-BAYER-2012-118455

PATIENT
  Age: 41 Year
  Sex: Female
  Weight: 106.58 kg

DRUGS (21)
  1. YASMIN [Suspect]
     Indication: ACNE
     Dosage: UNK
     Dates: start: 2005, end: 2006
  2. YASMIN [Suspect]
     Indication: PREMENSTRUAL SYNDROME
  3. NAPROXEN [Concomitant]
     Dosage: 500 MG, BID
     Dates: start: 20060510
  4. MORPHINE SULFATE [Concomitant]
     Dosage: UNK
     Dates: start: 20060510
  5. REGLAN [Concomitant]
     Dosage: 10 MG, TID
     Dates: start: 20060502
  6. BENTYL [Concomitant]
     Dosage: 20 MG, PRN
     Dates: start: 20060502
  7. NEURONTIN [Concomitant]
     Dosage: 600 MG, TID
     Dates: start: 20060420, end: 20070419
  8. METHADONE [Concomitant]
     Dosage: TWO TWICE A DAY
  9. ZELNORM [Concomitant]
     Dosage: 6 MG, BID
     Dates: start: 20060112, end: 20070111
  10. PROTONIX [Concomitant]
     Dosage: 40
     Dates: start: 20060112, end: 20070111
  11. FLEXERIL [Concomitant]
     Dosage: 10 MG, TID
     Dates: start: 20060315, end: 20070314
  12. BUSPAR [Concomitant]
     Dosage: 15 MG, TID
     Dates: start: 20051207, end: 20061206
  13. AMBIEN [Concomitant]
     Dosage: 5 MG, UNK
     Dates: start: 20060420, end: 20061019
  14. ULTRAM [Concomitant]
     Dosage: 100 MG, DAILY
     Dates: start: 20060516, end: 20070515
  15. VOLTAREN [Concomitant]
     Dosage: 100 MG, DAILY
     Dates: start: 20060516, end: 20070515
  16. COLACE [Concomitant]
     Dosage: 100, TID
  17. ADVAIR [Concomitant]
     Dosage: ONE PUFF TWO TIMES A DAY
     Dates: start: 20060516
  18. BIAXIN [Concomitant]
     Dosage: UNK
     Dates: start: 20060228
  19. ALLEGRA-D [Concomitant]
     Dosage: UNK
     Dates: start: 20060228
  20. TRI-LEVLEN [Concomitant]
  21. NADOLOL [Concomitant]
     Indication: PALPITATIONS
     Dosage: UNK
     Dates: start: 200605

REACTIONS (8)
  - Pulmonary embolism [Recovered/Resolved]
  - Deep vein thrombosis [None]
  - Biliary dyskinesia [Recovered/Resolved]
  - Injury [None]
  - Pain [Recovered/Resolved]
  - Mental disorder [None]
  - Pain [None]
  - Off label use [None]
